FAERS Safety Report 25890366 (Version 2)
Quarter: 2025Q4

REPORT INFORMATION
  Report Type: Spontaneous
  Country: US (occurrence: US)
  Receive Date: 20251007
  Receipt Date: 20251219
  Transmission Date: 20260118
  Serious: Yes (Other)
  Sender: INSUD PHARMA
  Company Number: US-INSUD PHARMA-2509US07993

PATIENT

DRUGS (5)
  1. GALLIFREY [Suspect]
     Active Substance: NORETHINDRONE ACETATE
     Indication: Endometriosis
     Dosage: 5 MG TWICE A DAY, MORNING AND NIGHT
     Route: 048
     Dates: start: 202505, end: 20250906
  2. GALLIFREY [Suspect]
     Active Substance: NORETHINDRONE ACETATE
     Indication: Uterine haemorrhage
  3. GALLIFREY [Suspect]
     Active Substance: NORETHINDRONE ACETATE
     Indication: Uterine cancer
  4. IBUPROFEN [Concomitant]
     Active Substance: IBUPROFEN
     Indication: Pain
     Dosage: 3 DOSAGE FORM, QD
     Route: 065
     Dates: end: 20250906
  5. ACYCLOVIR [Concomitant]
     Active Substance: ACYCLOVIR
     Indication: Herpes virus infection
     Dosage: 400 MILLIGRAM, BID
     Route: 065

REACTIONS (19)
  - Suspected drug-induced liver injury [Recovering/Resolving]
  - Hepatic steatosis [Recovering/Resolving]
  - Liver tenderness [Not Recovered/Not Resolved]
  - Visual impairment [Recovering/Resolving]
  - Skin disorder [Recovering/Resolving]
  - Asthenia [Recovering/Resolving]
  - Hypersomnia [Not Recovered/Not Resolved]
  - Condition aggravated [Recovering/Resolving]
  - Back pain [Recovering/Resolving]
  - Arthritis [Recovering/Resolving]
  - Bone disorder [Recovering/Resolving]
  - Erythema [Recovering/Resolving]
  - Pain [Recovering/Resolving]
  - Arthralgia [Recovering/Resolving]
  - Bone pain [Recovering/Resolving]
  - Headache [Recovering/Resolving]
  - Photopsia [Recovering/Resolving]
  - Hyperhidrosis [Not Recovered/Not Resolved]
  - Malaise [Not Recovered/Not Resolved]

NARRATIVE: CASE EVENT DATE: 20250101
